FAERS Safety Report 10292110 (Version 2)
Quarter: 2014Q3

REPORT INFORMATION
  Report Type: Report from Study
  Country: CA (occurrence: CA)
  Receive Date: 20140710
  Receipt Date: 20140710
  Transmission Date: 20150326
  Serious: Yes (Other)
  Sender: FDA-Public Use
  Company Number: CA-JNJFOC-20140610333

PATIENT
  Sex: Female
  Weight: 75 kg

DRUGS (3)
  1. REMICADE [Suspect]
     Active Substance: INFLIXIMAB
     Indication: RHEUMATOID ARTHRITIS
     Route: 042
     Dates: start: 20140429
  2. REMICADE [Suspect]
     Active Substance: INFLIXIMAB
     Indication: RHEUMATOID ARTHRITIS
     Route: 042
     Dates: start: 20140515
  3. REMICADE [Suspect]
     Active Substance: INFLIXIMAB
     Indication: RHEUMATOID ARTHRITIS
     Dosage: LOADING DOSES
     Route: 042
     Dates: start: 2014

REACTIONS (1)
  - Breast cancer [Unknown]

NARRATIVE: CASE EVENT DATE: 2014
